FAERS Safety Report 16177142 (Version 2)
Quarter: 2019Q2

REPORT INFORMATION
  Report Type: Report from Study
  Country: JP (occurrence: JP)
  Receive Date: 20190410
  Receipt Date: 20190620
  Transmission Date: 20190711
  Serious: Yes (Death, Other)
  Sender: FDA-Public Use
  Company Number: JP-AMGEN-JPNCT2018161952

PATIENT
  Age: 78 Year
  Sex: Female

DRUGS (116)
  1. CINACALCET HCL [Suspect]
     Active Substance: CINACALCET HYDROCHLORIDE
     Dosage: 75 MG, BID
     Route: 048
     Dates: start: 20171106, end: 20171109
  2. CINACALCET HCL [Suspect]
     Active Substance: CINACALCET HYDROCHLORIDE
     Dosage: 25 MG, TID
     Route: 048
     Dates: start: 20180220, end: 20180306
  3. CLOPIDOGREL [Concomitant]
     Active Substance: CLOPIDOGREL BISULFATE
     Dosage: 75 MILLIGRAM, QD
     Route: 048
  4. TELMISARTAN. [Concomitant]
     Active Substance: TELMISARTAN
     Indication: CARDIAC FAILURE CHRONIC
     Dosage: 20 MILLIGRAM
     Route: 048
     Dates: end: 20180306
  5. BONALON [Concomitant]
     Active Substance: ALENDRONATE SODIUM
     Indication: OSTEOPOROSIS
     Dosage: 35 MILLIGRAM
     Route: 048
     Dates: start: 20171018, end: 20171207
  6. MAGMITT [Concomitant]
     Active Substance: MAGNESIUM OXIDE
     Dosage: UNK, BID
     Route: 048
  7. MAGMITT [Concomitant]
     Active Substance: MAGNESIUM OXIDE
     Dosage: 330 MILLIGRAM, QD
     Route: 048
  8. FUROSEMIDE. [Concomitant]
     Active Substance: FUROSEMIDE
     Indication: CARDIAC FAILURE CHRONIC
     Dosage: 20 MILLIGRAM
     Route: 048
     Dates: start: 20171125, end: 20180306
  9. ALBUMIN TANNATE [Concomitant]
     Active Substance: ALBUMIN BOVINE\TANNIC ACID
     Indication: PRODUCT USED FOR UNKNOWN INDICATION
     Dosage: 1.5 GRAM
     Route: 048
     Dates: start: 20171203, end: 20180306
  10. ALBUMIN TANNATE [Concomitant]
     Active Substance: ALBUMIN BOVINE\TANNIC ACID
     Dosage: UNK, TID
     Route: 048
  11. LOPEMIN [Concomitant]
     Active Substance: LOPERAMIDE HYDROCHLORIDE
     Indication: PRODUCT USED FOR UNKNOWN INDICATION
     Dosage: 2 DOSAGE FORM
     Route: 048
     Dates: start: 20171124, end: 20180306
  12. ALDACTONE A [Concomitant]
     Active Substance: SPIRONOLACTONE
     Dosage: UNK, BID
     Route: 048
  13. ARTIST [Concomitant]
     Active Substance: CARVEDILOL
     Indication: CARDIAC FAILURE CHRONIC
     Dosage: 6.25 MILLIGRAM
     Route: 048
     Dates: start: 20180214, end: 20180217
  14. ARTIST [Concomitant]
     Active Substance: CARVEDILOL
     Dosage: 10 MILLIGRAM
     Route: 048
     Dates: start: 20180223, end: 20180307
  15. HEPARIN [Concomitant]
     Active Substance: HEPARIN SODIUM
     Indication: CARDIAC FAILURE CHRONIC
     Dosage: UNK UNK, AS NECESSARY (PRN)
     Route: 065
     Dates: end: 20180207
  16. ISOSORBIDE MONONITRATE. [Concomitant]
     Active Substance: ISOSORBIDE MONONITRATE
     Dosage: UNK, QD
     Route: 048
  17. K-SUPPLY [Concomitant]
     Active Substance: POTASSIUM CHLORIDE
     Indication: PRODUCT USED FOR UNKNOWN INDICATION
     Dosage: UNK, TID
     Route: 048
  18. DECADRON [Concomitant]
     Active Substance: DEXAMETHASONE
     Indication: PRODUCT USED FOR UNKNOWN INDICATION
     Dosage: UNK
     Route: 048
  19. BISOPROLOL FUMARATE. [Concomitant]
     Active Substance: BISOPROLOL FUMARATE
     Indication: PRODUCT USED FOR UNKNOWN INDICATION
     Dosage: UNK, QD
     Route: 048
  20. LOPERAMIDE [Concomitant]
     Active Substance: LOPERAMIDE
     Dosage: UNK UNK, BID
     Route: 048
  21. LASIX [Concomitant]
     Active Substance: FUROSEMIDE
     Indication: CARDIAC FAILURE CHRONIC
     Dosage: UNK
     Route: 042
  22. POTASSIUM CHLORIDE. [Concomitant]
     Active Substance: POTASSIUM CHLORIDE
     Indication: MALNUTRITION
     Dosage: UNK
     Route: 065
  23. POTASSIUM CHLORIDE. [Concomitant]
     Active Substance: POTASSIUM CHLORIDE
     Indication: DIARRHOEA
  24. VANCOMYCIN [Concomitant]
     Active Substance: VANCOMYCIN
     Indication: BACTERAEMIA
     Dosage: UNK
     Route: 041
  25. DOBUPUM [Concomitant]
     Active Substance: DOBUTAMINE HYDROCHLORIDE
     Indication: CARDIOGENIC SHOCK
     Dosage: UNK
     Route: 041
  26. SOLACET F [Concomitant]
     Active Substance: CALCIUM CHLORIDE\POTASSIUM CHLORIDE\SODIUM ACETATE\SODIUM CHLORIDE
     Indication: PRODUCT USED FOR UNKNOWN INDICATION
     Dosage: UNK
     Route: 041
  27. HUMULIN R [Concomitant]
     Active Substance: INSULIN HUMAN
     Indication: HYPERGLYCAEMIA
     Dosage: UNK
     Route: 058
  28. NORADRENALINE [Concomitant]
     Active Substance: NOREPINEPHRINE
     Indication: CARDIOGENIC SHOCK
     Dosage: UNK
     Route: 041
  29. FENTANYL. [Concomitant]
     Active Substance: FENTANYL
     Indication: SEDATION
     Dosage: UNK
     Route: 041
  30. CINACALCET HCL [Suspect]
     Active Substance: CINACALCET HYDROCHLORIDE
     Dosage: 125 MG, DIVIDED INTO TWO DOSES (75MG-50MG)
     Route: 048
     Dates: start: 20171103, end: 20171105
  31. BISOPROLOL [Concomitant]
     Active Substance: BISOPROLOL
     Indication: CARDIAC FAILURE CHRONIC
     Dosage: 1.25 MILLIGRAM
     Route: 048
     Dates: start: 20171201, end: 20180306
  32. PERINDOPRIL ERBUMINE. [Concomitant]
     Active Substance: PERINDOPRIL ERBUMINE
     Dosage: UNK, QD
     Route: 048
  33. SODIUM PHOSPHATE [Concomitant]
     Active Substance: SODIUM PHOSPHATE
     Indication: PRODUCT USED FOR UNKNOWN INDICATION
     Dosage: UNK
     Route: 041
  34. VOLVIX [Concomitant]
     Indication: MALNUTRITION
     Dosage: UNK
     Route: 042
  35. BIOFERMIN R [Concomitant]
     Active Substance: DIETARY SUPPLEMENT\PROBIOTICS
     Indication: DIARRHOEA
     Dosage: UNK UNK, TID
     Route: 048
  36. GLUCOSE [Concomitant]
     Active Substance: DEXTROSE
     Indication: PRODUCT USED FOR UNKNOWN INDICATION
     Dosage: UNK
     Route: 041
  37. ANCARON [Concomitant]
     Active Substance: AMIODARONE HYDROCHLORIDE
     Indication: CARDIAC FAILURE CHRONIC
     Dosage: UNK
     Route: 041
  38. MIDAZOLAM [Concomitant]
     Active Substance: MIDAZOLAM HYDROCHLORIDE
     Indication: SEDATION
     Dosage: UNK
     Route: 041
  39. CINACALCET HCL [Suspect]
     Active Substance: CINACALCET HYDROCHLORIDE
     Indication: HYPERPARATHYROIDISM PRIMARY
     Dosage: 25 MILLIGRAM, QD
     Route: 048
     Dates: start: 20171018, end: 20171019
  40. CINACALCET HCL [Suspect]
     Active Substance: CINACALCET HYDROCHLORIDE
     Dosage: 50 MILLIGRAM, BID
     Route: 048
     Dates: start: 20171026, end: 20171102
  41. CINACALCET HCL [Suspect]
     Active Substance: CINACALCET HYDROCHLORIDE
     Dosage: 75 MG, TID
     Route: 048
     Dates: start: 20171208, end: 20171218
  42. CINACALCET HCL [Suspect]
     Active Substance: CINACALCET HYDROCHLORIDE
     Dosage: 100 MG, DIVIDED INTO THREE DOSES (50MG-25MG-25MG)
     Route: 048
     Dates: start: 20171221, end: 20171231
  43. MIYA-BM [Concomitant]
     Active Substance: CLOSTRIDIUM BUTYRICUM SPORES STRAIN M-55
     Indication: PRODUCT USED FOR UNKNOWN INDICATION
     Dosage: 3 DOSAGE FORM
     Route: 048
     Dates: start: 20171021, end: 20171025
  44. LANSOPRAZOLE. [Concomitant]
     Active Substance: LANSOPRAZOLE
     Dosage: 15 MILLIGRAM, QD
     Route: 048
  45. ALDACTONE A [Concomitant]
     Active Substance: SPIRONOLACTONE
     Indication: CARDIAC FAILURE CHRONIC
     Dosage: 50 MILLIGRAM
     Route: 048
     Dates: start: 20180202, end: 20180213
  46. BAROS ANTIFOAMING [Concomitant]
     Active Substance: DIMETHICONE
     Indication: PRODUCT USED FOR UNKNOWN INDICATION
     Dosage: UNK, QD
     Route: 048
  47. HEPARIN [Concomitant]
     Active Substance: HEPARIN SODIUM
     Indication: PRODUCT USED FOR UNKNOWN INDICATION
     Dosage: UNK
     Route: 041
  48. ISOTONIC SODIUM CHLORIDE SOLUTION [Concomitant]
     Active Substance: SODIUM CHLORIDE
     Indication: PRODUCT USED FOR UNKNOWN INDICATION
     Dosage: UNK
     Route: 041
  49. TAKEPRON [Concomitant]
     Active Substance: LANSOPRAZOLE
     Indication: PRODUCT USED FOR UNKNOWN INDICATION
     Dosage: UNK
     Route: 041
  50. CINACALCET HCL [Suspect]
     Active Substance: CINACALCET HYDROCHLORIDE
     Dosage: 75 MG, DIVIDED INTO TWO DOSES (50MG-25MG)
     Route: 048
     Dates: start: 20171023, end: 20171025
  51. CINACALCET HCL [Suspect]
     Active Substance: CINACALCET HYDROCHLORIDE
     Dosage: 175 MG, DIVIDED INTO THREE DOSES (75MG-25MG-75MG)
     Route: 048
     Dates: start: 20171110, end: 20171113
  52. ISOSORBIDE. [Concomitant]
     Active Substance: ISOSORBIDE
     Indication: MYOCARDIAL INFARCTION
  53. ARTIST [Concomitant]
     Active Substance: CARVEDILOL
     Dosage: UNK, QD
     Route: 048
  54. TERPERAN [Concomitant]
     Active Substance: METOCLOPRAMIDE HYDROCHLORIDE
     Indication: PRODUCT USED FOR UNKNOWN INDICATION
     Dosage: UNK, QD
     Route: 048
  55. GLUCONSAN K [Concomitant]
     Active Substance: POTASSIUM GLUCONATE
     Indication: MALNUTRITION
     Dosage: 4 MILLIEQUIVALENT, QD
     Route: 048
  56. GLUCONSAN K [Concomitant]
     Active Substance: POTASSIUM GLUCONATE
     Dosage: UNK, TID
     Route: 048
  57. SULBACILLIN [Concomitant]
     Active Substance: AMPICILLIN SODIUM\SULBACTAM SODIUM
     Indication: URINARY TRACT INFECTION
     Dosage: UNK
     Route: 041
  58. ACELIO [Concomitant]
     Active Substance: ACETAMINOPHEN
     Indication: INFECTION
     Dosage: UNK
     Route: 042
  59. ASCORBIC ACID. [Concomitant]
     Active Substance: ASCORBIC ACID
     Indication: MALNUTRITION
     Dosage: UNK
     Route: 041
  60. MEROPEN [Concomitant]
     Active Substance: MEROPENEM
     Indication: BACTERAEMIA
     Dosage: UNK
     Route: 041
  61. CINACALCET HCL [Suspect]
     Active Substance: CINACALCET HYDROCHLORIDE
     Dosage: 50 MG, TID
     Route: 048
     Dates: start: 20180101, end: 20180129
  62. TELMISARTAN. [Concomitant]
     Active Substance: TELMISARTAN
     Dosage: 20 MILLIGRAM, QD
     Route: 048
  63. BONALON [Concomitant]
     Active Substance: ALENDRONATE SODIUM
     Dosage: UNK, QWK
     Route: 048
  64. SAMSCA [Concomitant]
     Active Substance: TOLVAPTAN
     Indication: CARDIAC FAILURE CHRONIC
     Dosage: 3.75 MILLIGRAM
     Route: 048
     Dates: start: 20180129, end: 20180207
  65. ARTIST [Concomitant]
     Active Substance: CARVEDILOL
     Dosage: 7.5 MILLIGRAM
     Route: 048
     Dates: start: 20180218, end: 20180222
  66. BIOFERMIN [Concomitant]
     Active Substance: DIETARY SUPPLEMENT\PROBIOTICS
     Dosage: UNK, TID
     Route: 048
  67. GLUCONSAN K [Concomitant]
     Active Substance: POTASSIUM GLUCONATE
     Indication: DIARRHOEA
     Dosage: UNK, BID
     Route: 048
  68. BFLUID [Concomitant]
     Active Substance: AMINO ACIDS\DEXTROSE\ELECTROLYTES NOS\VITAMINS
     Indication: PRODUCT USED FOR UNKNOWN INDICATION
     Dosage: UNK
     Route: 041
  69. LOPERAMIDE [Concomitant]
     Active Substance: LOPERAMIDE
     Dosage: UNK UNK, QD
     Route: 048
  70. ZOSYN [Concomitant]
     Active Substance: PIPERACILLIN SODIUM\TAZOBACTAM SODIUM
     Indication: PNEUMONIA
     Dosage: UNK
     Route: 042
  71. ELNEOPA NF NO.2 [Concomitant]
     Indication: PRODUCT USED FOR UNKNOWN INDICATION
     Dosage: UNK
     Route: 042
  72. RESTAMIN [Concomitant]
     Active Substance: DIPHENHYDRAMINE
     Indication: ECZEMA
     Dosage: UNK UNK, BID
     Route: 061
  73. VITAMEDIN [Concomitant]
     Active Substance: CYANOCOBALAMIN\PYRIDOXINE HYDROCHLORIDE\THIAMINE
     Indication: MALNUTRITION
     Dosage: UNK
     Route: 041
  74. CEFMETAZOLE NA [Concomitant]
     Active Substance: CEFMETAZOLE
     Indication: BACTERAEMIA
  75. CINACALCET HCL [Suspect]
     Active Substance: CINACALCET HYDROCHLORIDE
     Dosage: 200 MG, DIVIDED INTO THREE DOSES (75MG-50MG-75MG)
     Route: 048
     Dates: start: 20171114, end: 20171115
  76. CINACALCET HCL [Suspect]
     Active Substance: CINACALCET HYDROCHLORIDE
     Dosage: 250 MG, DIVIDED INTO FOUR DOSES (75MG-75MG-75MG-25MG)
     Route: 048
     Dates: start: 20171124, end: 20171207
  77. CINACALCET HCL [Suspect]
     Active Substance: CINACALCET HYDROCHLORIDE
     Dosage: 50 MG, TID
     Route: 048
     Dates: start: 20171219, end: 20171220
  78. CLOPIDOGREL [Concomitant]
     Active Substance: CLOPIDOGREL BISULFATE
     Indication: MYOCARDIAL INFARCTION
     Dosage: 75 MILLIGRAM
     Route: 048
     Dates: end: 20180306
  79. MIYA-BM [Concomitant]
     Active Substance: CLOSTRIDIUM BUTYRICUM SPORES STRAIN M-55
     Dosage: UNK, TID
     Route: 048
  80. MIYA-BM [Concomitant]
     Active Substance: CLOSTRIDIUM BUTYRICUM SPORES STRAIN M-55
     Dosage: UNK UNK, QD
     Route: 048
  81. LANSOPRAZOLE. [Concomitant]
     Active Substance: LANSOPRAZOLE
     Indication: PRODUCT USED FOR UNKNOWN INDICATION
     Dosage: 15 MILLIGRAM
     Route: 048
     Dates: start: 20171110, end: 20180306
  82. ARTIST [Concomitant]
     Active Substance: CARVEDILOL
     Dosage: UNK UNK, BID
     Route: 048
  83. BIOFERMIN [Concomitant]
     Active Substance: DIETARY SUPPLEMENT\PROBIOTICS
     Dosage: UNK, QD
     Route: 048
  84. SENNOSIDE [Concomitant]
     Active Substance: SENNOSIDES
     Indication: PRODUCT USED FOR UNKNOWN INDICATION
     Dosage: UNK, QD
     Route: 048
  85. LOPERAMIDE [Concomitant]
     Active Substance: LOPERAMIDE
     Indication: PRODUCT USED FOR UNKNOWN INDICATION
     Dosage: UNK UNK, QD
     Route: 048
  86. INTRALIPOS [Concomitant]
     Active Substance: SOYBEAN OIL
     Indication: PRODUCT USED FOR UNKNOWN INDICATION
     Dosage: UNK
     Route: 041
  87. VITAJECT [Concomitant]
     Active Substance: CYANOCOBALAMIN\PYRIDOXAMINE HYDROCHLORIDE\THIAMINE HYDROCHLORIDE
     Indication: MALNUTRITION
     Dosage: UNK
     Route: 042
  88. VASOLAN [Concomitant]
     Indication: TACHYCARDIA
     Dosage: UNK
     Route: 041
  89. SPIRONOLACTONE. [Concomitant]
     Active Substance: SPIRONOLACTONE
     Indication: CARDIAC FAILURE CHRONIC
     Dosage: UNK UNK, BID
     Route: 048
  90. CINACALCET HCL [Suspect]
     Active Substance: CINACALCET HYDROCHLORIDE
     Dosage: 25 MILLIGRAM, BID
     Route: 048
     Dates: start: 20171020, end: 20171022
  91. MAGMITT [Concomitant]
     Active Substance: MAGNESIUM OXIDE
     Indication: CONSTIPATION
     Dosage: 660 MILLIGRAM
     Route: 048
     Dates: end: 20171020
  92. DERMOVATE [Concomitant]
     Active Substance: CLOBETASOL
     Indication: PRODUCT USED FOR UNKNOWN INDICATION
     Dosage: UNK UNK, AS NECESSARY (PRN)
     Route: 061
     Dates: start: 20171218, end: 20180306
  93. SAMSCA [Concomitant]
     Active Substance: TOLVAPTAN
     Dosage: UNK, QD
     Route: 048
  94. WARFARIN [Concomitant]
     Active Substance: WARFARIN
     Indication: CARDIAC VENTRICULAR THROMBOSIS
     Dosage: UNK UNK, AS NECESSARY (PRN)
     Route: 048
     Dates: start: 20180207, end: 20180306
  95. BIOFERMIN [Concomitant]
     Active Substance: DIETARY SUPPLEMENT\PROBIOTICS
     Indication: PRODUCT USED FOR UNKNOWN INDICATION
     Dosage: 9 GRAM
     Route: 048
     Dates: start: 20171106, end: 20180306
  96. ISOSORBIDE MONONITRATE. [Concomitant]
     Active Substance: ISOSORBIDE MONONITRATE
     Indication: PRODUCT USED FOR UNKNOWN INDICATION
     Dosage: UNK, BID
     Route: 048
  97. NIFLEC [Concomitant]
     Active Substance: POLYETHYLENE GLYCOLS\POTASSIUM CHLORIDE\SODIUM BICARBONATE\SODIUM CHLORIDE\SODIUM SULFATE ANHYDROUS
     Indication: PRODUCT USED FOR UNKNOWN INDICATION
     Dosage: UNK, QD
     Route: 048
  98. ELCITONIN [Concomitant]
     Active Substance: ELCATONIN
     Indication: HYPERPARATHYROIDISM PRIMARY
     Dosage: UNK
     Route: 042
  99. PHYSIO 35 [Concomitant]
     Active Substance: ELECTROLYTES NOS
     Indication: PRODUCT USED FOR UNKNOWN INDICATION
     Dosage: UNK
     Route: 041
  100. PRODIF [Concomitant]
     Active Substance: FOSFLUCONAZOLE
     Indication: CANDIDA INFECTION
     Dosage: UNK
     Route: 041
  101. LACTEC [Concomitant]
     Active Substance: CALCIUM CHLORIDE ANHYDROUS\POTASSIUM CHLORIDE\SODIUM CHLORIDE\SODIUM LACTATE
     Indication: PRODUCT USED FOR UNKNOWN INDICATION
     Dosage: UNK
     Route: 041
  102. CINACALCET HCL [Suspect]
     Active Substance: CINACALCET HYDROCHLORIDE
     Dosage: 75 MG, TID
     Route: 048
     Dates: start: 20171116, end: 20171123
  103. CINACALCET HCL [Suspect]
     Active Substance: CINACALCET HYDROCHLORIDE
     Dosage: 50 MG, BID
     Route: 048
     Dates: start: 20180130, end: 20180219
  104. ISOSORBIDE. [Concomitant]
     Active Substance: ISOSORBIDE
     Indication: CARDIAC FAILURE CHRONIC
     Dosage: 40 MILLIGRAM
     Route: 048
     Dates: end: 20180306
  105. MIYA-BM [Concomitant]
     Active Substance: CLOSTRIDIUM BUTYRICUM SPORES STRAIN M-55
     Dosage: 6 DOSAGE FORM
     Route: 048
     Dates: start: 20171026, end: 20180306
  106. FUROSEMIDE. [Concomitant]
     Active Substance: FUROSEMIDE
     Dosage: UNK, QD
     Route: 048
  107. DERMOVATE [Concomitant]
     Active Substance: CLOBETASOL
     Dosage: UNK UNK, BID
     Route: 061
  108. PERINDOPRIL ERBUMINE. [Concomitant]
     Active Substance: PERINDOPRIL ERBUMINE
     Indication: CARDIAC FAILURE CHRONIC
     Dosage: 1 MILLIGRAM
     Route: 048
     Dates: start: 20180207, end: 20180214
  109. ARTIST [Concomitant]
     Active Substance: CARVEDILOL
     Dosage: UNK UNK, QD
     Route: 048
  110. WARFARIN [Concomitant]
     Active Substance: WARFARIN
     Dosage: UNK UNK, QD
     Route: 048
  111. HEPARIN [Concomitant]
     Active Substance: HEPARIN SODIUM
     Indication: CARDIAC VENTRICULAR THROMBOSIS
  112. SOLDEM 3A [Concomitant]
     Active Substance: CARBOHYDRATES\POTASSIUM CHLORIDE\SODIUM CHLORIDE\SODIUM LACTATE
     Indication: PRODUCT USED FOR UNKNOWN INDICATION
     Dosage: UNK
     Route: 041
  113. ELNEOPA NF NO.1 [Concomitant]
     Indication: PRODUCT USED FOR UNKNOWN INDICATION
     Dosage: UNK
     Route: 042
  114. SOLDEM 3AG [Concomitant]
     Indication: PRODUCT USED FOR UNKNOWN INDICATION
     Dosage: UNK
     Route: 041
  115. SODIUM CHLORIDE. [Concomitant]
     Active Substance: SODIUM CHLORIDE
     Indication: PRODUCT USED FOR UNKNOWN INDICATION
     Dosage: UNK
     Route: 042
  116. CEFMETAZOLE NA [Concomitant]
     Active Substance: CEFMETAZOLE
     Indication: URINARY TRACT INFECTION
     Dosage: UNK
     Route: 041

REACTIONS (6)
  - Hyperglycaemia [Recovering/Resolving]
  - Candida infection [Recovering/Resolving]
  - Cardiogenic shock [Fatal]
  - Atrial fibrillation [Recovering/Resolving]
  - Ventricular fibrillation [Fatal]
  - Diarrhoea [Recovering/Resolving]

NARRATIVE: CASE EVENT DATE: 20171021
